FAERS Safety Report 8589802-8 (Version None)
Quarter: 2012Q3

REPORT INFORMATION
  Report Type: 
  Country: None (occurrence: None)
  Receive Date: 20120813
  Receipt Date: 20120807
  Transmission Date: 20120928
  Serious: Yes (Other)
  Sender: FDA-Public Use
  Company Number: US-PFIZER INC-2012167017

PATIENT
  Age: 77 Year
  Sex: Female
  Weight: 74.83 kg

DRUGS (3)
  1. LYRICA [Suspect]
     Indication: FIBROMYALGIA
     Dosage: 25 MG, 2X/DAY
     Route: 048
     Dates: start: 20120601
  2. VESICARE [Suspect]
     Indication: BLADDER DISORDER
     Dosage: UNK
     Dates: start: 20120101, end: 20120101
  3. LYRICA [Suspect]
     Dosage: UNK
     Route: 048
     Dates: start: 20120701

REACTIONS (10)
  - DISTURBANCE IN ATTENTION [None]
  - WEIGHT INCREASED [None]
  - BALANCE DISORDER [None]
  - SUICIDAL IDEATION [None]
  - FATIGUE [None]
  - PAIN [None]
  - OEDEMA PERIPHERAL [None]
  - MUSCULOSKELETAL STIFFNESS [None]
  - VISION BLURRED [None]
  - THERAPEUTIC RESPONSE UNEXPECTED [None]
